FAERS Safety Report 13041619 (Version 1)
Quarter: 2016Q4

REPORT INFORMATION
  Report Type: Spontaneous
  Country: US (occurrence: US)
  Receive Date: 20161219
  Receipt Date: 20161219
  Transmission Date: 20170207
  Serious: No
  Sender: FDA-Public Use
  Company Number: US-ROCHE-1301339

PATIENT
  Sex: Male
  Weight: 120.31 kg

DRUGS (2)
  1. ZELBORAF [Suspect]
     Active Substance: VEMURAFENIB
     Indication: MALIGNANT MELANOMA
     Route: 048
     Dates: start: 20130327
  2. METROPOLOL COMP [Concomitant]
     Indication: HYPERTENSION

REACTIONS (1)
  - Rash generalised [Unknown]
